FAERS Safety Report 12648313 (Version 3)
Quarter: 2017Q2

REPORT INFORMATION
  Report Type: Spontaneous
  Country: JP (occurrence: JP)
  Receive Date: 20160812
  Receipt Date: 20170407
  Transmission Date: 20170830
  Serious: No
  Sender: FDA-Public Use
  Company Number: JP-009507513-1608JPN006268

PATIENT
  Age: 77 Year
  Sex: Male

DRUGS (28)
  1. GLACTIV [Suspect]
     Active Substance: SITAGLIPTIN
     Indication: TYPE 2 DIABETES MELLITUS
     Dosage: 25 MG, DAILY
     Route: 048
     Dates: start: 20121221, end: 20130130
  2. VOGLIBOSE [Concomitant]
     Active Substance: VOGLIBOSE
  3. LIPITOR [Concomitant]
     Active Substance: ATORVASTATIN CALCIUM
  4. KINEDAK [Concomitant]
     Active Substance: EPALRESTAT
     Indication: DIABETIC NEUROPATHY
     Dosage: 150 MG
     Route: 048
  5. PLAVIX [Concomitant]
     Active Substance: CLOPIDOGREL BISULFATE
  6. NEXIUM [Concomitant]
     Active Substance: ESOMEPRAZOLE MAGNESIUM
  7. UBRETID [Concomitant]
     Active Substance: DISTIGMINE BROMIDE
  8. MENATETRENONE [Concomitant]
     Active Substance: MENATETRENONE
  9. ASPARA CA [Concomitant]
  10. MUCOSTA [Concomitant]
     Active Substance: REBAMIPIDE
  11. SELBEX [Concomitant]
     Active Substance: TEPRENONE
  12. GLACTIV [Suspect]
     Active Substance: SITAGLIPTIN
     Dosage: 50 MG, DAILY
     Route: 048
     Dates: start: 20130131, end: 20160926
  13. BLOPRESS [Concomitant]
     Active Substance: CANDESARTAN CILEXETIL
  14. METGLUCO [Concomitant]
     Active Substance: METFORMIN HYDROCHLORIDE
  15. CLOPIDOGREL [Concomitant]
     Active Substance: CLOPIDOGREL BISULFATE
     Dosage: UNK
     Dates: start: 20130517
  16. HYALEIN [Concomitant]
     Active Substance: HYALURONATE SODIUM
  17. BASEN OD [Concomitant]
     Active Substance: VOGLIBOSE
  18. MAGMITT [Concomitant]
     Active Substance: MAGNESIUM OXIDE
  19. ISOSORBIDE MONONITRATE. [Concomitant]
     Active Substance: ISOSORBIDE MONONITRATE
  20. TIMOLOL MALEATE. [Concomitant]
     Active Substance: TIMOLOL MALEATE
  21. NITRODERM [Concomitant]
     Active Substance: NITROGLYCERIN
  22. ATORVASTATIN [Concomitant]
     Active Substance: ATORVASTATIN
  23. DIQUAS [Concomitant]
     Active Substance: DIQUAFOSOL TETRASODIUM
  24. NOVORAPID [Concomitant]
     Active Substance: INSULIN ASPART
  25. OMEPRAL [Concomitant]
     Active Substance: OMEPRAZOLE
  26. URIEF [Concomitant]
     Active Substance: SILODOSIN
  27. AVOLVE [Concomitant]
     Active Substance: DUTASTERIDE
  28. CELECOX [Concomitant]
     Active Substance: CELECOXIB

REACTIONS (1)
  - Interstitial lung disease [Not Recovered/Not Resolved]

NARRATIVE: CASE EVENT DATE: 20131025
